FAERS Safety Report 12103305 (Version 3)
Quarter: 2016Q1

REPORT INFORMATION
  Report Type: Spontaneous
  Country: US (occurrence: US)
  Receive Date: 20160222
  Receipt Date: 20160331
  Transmission Date: 20160526
  Serious: No
  Sender: FDA-Public Use
  Company Number: US-009507513-1602USA008432

PATIENT
  Sex: Female

DRUGS (2)
  1. CELESTONE SOLUSPAN [Suspect]
     Active Substance: BETAMETHASONE ACETATE\BETAMETHASONE SODIUM PHOSPHATE
     Dosage: THERAPY ROUTE: SPINAL INJECTIONS ON HER CERVICAL AND LUMBAR REGIONS
  2. CELESTONE SOLUSPAN [Suspect]
     Active Substance: BETAMETHASONE ACETATE\BETAMETHASONE SODIUM PHOSPHATE
     Dosage: CERVICAL INJECTION
     Dates: start: 20150413

REACTIONS (2)
  - Arachnoiditis [Unknown]
  - Nervous system disorder [Unknown]
